FAERS Safety Report 10976734 (Version 1)
Quarter: 2015Q1

REPORT INFORMATION
  Report Type: Spontaneous
  Country: US (occurrence: None)
  Receive Date: 20150226
  Receipt Date: 20150226
  Transmission Date: 20150721
  Serious: Yes (Death, Other)
  Sender: FDA-Public Use
  Company Number: 2013TUS000243

PATIENT
  Age: 61 Year
  Sex: Female
  Weight: 73 kg

DRUGS (16)
  1. CARVEDILOL (CARVEDILOL) [Concomitant]
     Active Substance: CARVEDILOL
  2. HYDROCODONE W/APAP (HYDROCODONE, PARACETAMOL) [Concomitant]
  3. VICODIN [Concomitant]
     Active Substance: ACETAMINOPHEN\HYDROCODONE BITARTRATE
  4. PREVACID [Concomitant]
     Active Substance: LANSOPRAZOLE
  5. DOCUSATE SODIUM (DOCUSATE SODIUM) [Concomitant]
     Active Substance: DOCUSATE SODIUM
  6. PNEUMOCOCCAL VACCINE (PNEUMOCOCCAL VACCINE) [Concomitant]
  7. PRAVASTATIN [Concomitant]
     Active Substance: PRAVASTATIN\PRAVASTATIN SODIUM
  8. FAMOTIDINE (FAMOTIDINE) [Concomitant]
     Active Substance: FAMOTIDINE
  9. COREG [Concomitant]
     Active Substance: CARVEDILOL
  10. AVANDIA (ROSIGLITAZONE MALEATE) [Concomitant]
  11. VICODIN [Concomitant]
     Active Substance: ACETAMINOPHEN\HYDROCODONE BITARTRATE
  12. ACTOS [Suspect]
     Active Substance: PIOGLITAZONE HYDROCHLORIDE
     Indication: HYPERTENSION
     Route: 048
     Dates: start: 20071003, end: 20080109
  13. ZOCOR [Concomitant]
     Active Substance: SIMVASTATIN
  14. INSULIN (INSULIN) [Concomitant]
     Active Substance: INSULIN NOS
  15. ASPIRIN (ACETYLSALICYLIC CID) [Concomitant]
  16. EPOGEN [Concomitant]
     Active Substance: ERYTHROPOIETIN

REACTIONS (1)
  - Cardiac failure [None]

NARRATIVE: CASE EVENT DATE: 20090602
